FAERS Safety Report 9150874 (Version 1)
Quarter: 2013Q1

REPORT INFORMATION
  Report Type: Spontaneous
  Country: US (occurrence: US)
  Receive Date: 20130308
  Receipt Date: 20130308
  Transmission Date: 20140127
  Serious: No
  Sender: FDA-Public Use
  Company Number: US-ENDO PHARMACEUTICALS INC.-OPCR20121279

PATIENT
  Sex: Female

DRUGS (6)
  1. OPANA ER [Suspect]
     Indication: PAIN
     Route: 048
     Dates: start: 2012, end: 20120501
  2. OPANA ER [Suspect]
     Route: 048
     Dates: start: 20120501, end: 20120529
  3. OPANA ER [Suspect]
     Route: 048
     Dates: start: 20120529
  4. OPANA ER [Concomitant]
     Indication: PAIN
     Dosage: UNKNOWN
     Route: 048
     Dates: end: 2012
  5. LORTAB [Concomitant]
     Indication: BREAKTHROUGH PAIN
     Dosage: UNKNOWN
     Route: 048
  6. CYMBALTA [Concomitant]
     Indication: BREAKTHROUGH PAIN
     Route: 048

REACTIONS (2)
  - Medication residue present [Unknown]
  - Drug ineffective [Unknown]
